FAERS Safety Report 8259227-3 (Version None)
Quarter: 2012Q2

REPORT INFORMATION
  Report Type: 
  Country: None (occurrence: None)
  Receive Date: 20120404
  Receipt Date: 20120326
  Transmission Date: 20120825
  Serious: Yes (Hospitalization)
  Sender: FDA-Public Use
  Company Number: US-ASTRAZENECA-2011SE49546

PATIENT
  Age: 73 Year
  Sex: Female
  Weight: 68 kg

DRUGS (23)
  1. SEROQUEL [Suspect]
     Indication: BIPOLAR DISORDER
     Route: 048
  2. SEROQUEL [Suspect]
     Route: 048
  3. SEROQUEL [Suspect]
     Route: 048
  4. SEROQUEL [Suspect]
     Route: 048
  5. SEROQUEL [Suspect]
     Route: 048
  6. SEROQUEL [Suspect]
     Route: 048
  7. ATIVAN [Concomitant]
     Indication: ANXIETY
  8. SEROQUEL [Suspect]
     Route: 048
  9. SEROQUEL [Suspect]
     Route: 048
     Dates: start: 20110801
  10. SEROQUEL [Suspect]
     Route: 048
  11. SEROQUEL [Suspect]
     Route: 048
  12. SEROQUEL [Suspect]
     Route: 048
  13. SEROQUEL [Suspect]
     Indication: PARANOIA
     Route: 048
  14. SEROQUEL [Suspect]
     Route: 048
     Dates: start: 20110801
  15. SEROQUEL [Suspect]
     Route: 048
  16. SEROQUEL [Suspect]
     Route: 048
  17. SEROQUEL [Suspect]
     Route: 048
  18. SEROQUEL [Suspect]
     Route: 048
  19. SEROQUEL [Suspect]
     Route: 048
     Dates: start: 20110801
  20. PROSAC [Concomitant]
     Indication: ANXIETY
  21. SEROQUEL [Suspect]
     Indication: SCHIZOPHRENIA
     Route: 048
  22. SEROQUEL [Suspect]
     Route: 048
  23. SEROQUEL [Suspect]
     Route: 048

REACTIONS (20)
  - SLOW RESPONSE TO STIMULI [None]
  - FEELING ABNORMAL [None]
  - FEAR [None]
  - DRY MOUTH [None]
  - HALLUCINATION, AUDITORY [None]
  - FAECES HARD [None]
  - DELUSION [None]
  - WEIGHT INCREASED [None]
  - INAPPROPRIATE AFFECT [None]
  - EMOTIONAL DISTRESS [None]
  - ABNORMAL BEHAVIOUR [None]
  - SUSPICIOUSNESS [None]
  - PERSONALITY DISORDER [None]
  - DRUG EFFECT DECREASED [None]
  - TREMOR [None]
  - PSYCHIATRIC SYMPTOM [None]
  - ANXIETY [None]
  - PARANOID PERSONALITY DISORDER [None]
  - DISORIENTATION [None]
  - INTENTIONAL DRUG MISUSE [None]
